FAERS Safety Report 13264181 (Version 1)
Quarter: 2017Q1

REPORT INFORMATION
  Report Type: Spontaneous
  Country: US (occurrence: US)
  Receive Date: 20170223
  Receipt Date: 20170223
  Transmission Date: 20170428
  Serious: Yes (Other)
  Sender: FDA-Public Use
  Company Number: None

PATIENT
  Age: 68 Year
  Sex: Female
  Weight: 54.93 kg

DRUGS (6)
  1. RISEDRONATE SODIUM. [Suspect]
     Active Substance: RISEDRONATE SODIUM
     Indication: OSTEOPOROSIS
     Dosage: 1 PILL ONCE A MONTH, MOUTH
     Route: 048
     Dates: start: 20161201, end: 20161201
  2. CRANBERRY. [Concomitant]
     Active Substance: CRANBERRY
  3. SUMATRIPTAN. [Concomitant]
     Active Substance: SUMATRIPTAN
  4. METOPROLOL. [Concomitant]
     Active Substance: METOPROLOL
  5. VITAMIN C [Concomitant]
     Active Substance: ASCORBIC ACID
  6. CALCIUM/VIT. D [Concomitant]

REACTIONS (5)
  - Musculoskeletal stiffness [None]
  - Musculoskeletal pain [None]
  - Arthralgia [None]
  - Activities of daily living impaired [None]
  - Pain in extremity [None]

NARRATIVE: CASE EVENT DATE: 20161207
